FAERS Safety Report 26086939 (Version 1)
Quarter: 2025Q4

REPORT INFORMATION
  Report Type: Spontaneous
  Country: IR (occurrence: IR)
  Receive Date: 20251125
  Receipt Date: 20251125
  Transmission Date: 20260117
  Serious: Yes (Other)
  Sender: RANBAXY
  Company Number: IR-SUN PHARMACEUTICAL INDUSTRIES LTD-2025R1-537490

PATIENT
  Age: 31 Year
  Sex: Male

DRUGS (1)
  1. TRAMADOL [Suspect]
     Active Substance: TRAMADOL
     Indication: Sexual dysfunction
     Dosage: UNK (3 TO 4 PILLS DAILY)
     Route: 065

REACTIONS (1)
  - Mania [Recovered/Resolved]
